FAERS Safety Report 21491914 (Version 1)
Quarter: 2022Q4

REPORT INFORMATION
  Report Type: Spontaneous
  Country: US (occurrence: US)
  Receive Date: 20221021
  Receipt Date: 20221021
  Transmission Date: 20230112
  Serious: No
  Sender: FDA-Public Use
  Company Number: US-CELLTRION INC.-2022US011671

PATIENT

DRUGS (10)
  1. INFLECTRA [Suspect]
     Active Substance: INFLIXIMAB-DYYB
     Indication: Product used for unknown indication
     Dosage: 390 MG 100MG/20ML (Q8WEEKS QUNANITY: 1 REFILLS
     Route: 065
  2. INFLECTRA [Suspect]
     Active Substance: INFLIXIMAB-DYYB
     Dosage: 400MG EVEY 8 WEEKS
     Route: 065
     Dates: start: 20220718
  3. ATORVASTATIN [Concomitant]
     Active Substance: ATORVASTATIN
     Dosage: 80 MILLIGRAM, 1 TABLET BY MOUTH ONCE A DAY (QTY: 90)
     Route: 048
     Dates: start: 20220718
  4. DENTA 5000 PLUS [Concomitant]
     Active Substance: SODIUM FLUORIDE
     Dosage: 1.1 PERCENT (QTY: 153)
  5. GABAPENTIN [Concomitant]
     Active Substance: GABAPENTIN
     Dosage: 1000 MILLIGRAM, 3 CAPSULES BY MOUTH AT BEDTIME (QTY: 270)
     Route: 048
     Dates: start: 20220718
  6. LOPERAMIDE [Concomitant]
     Active Substance: LOPERAMIDE
     Dosage: 2 MILLIGRAM, 1 CAPSULE BY MOUTH FOUR TIMES A DAY AS NEEDED (QTY: 240)
     Route: 048
     Dates: start: 20220718
  7. NYSTATIN [Concomitant]
     Active Substance: NYSTATIN
     Dosage: 100000 UNIT/GRAM (QTY: 60)
  8. OFLOXACIN [Concomitant]
     Active Substance: OFLOXACIN
     Dosage: 0.3 PERCENT
  9. OMEPRAZOLE [Concomitant]
     Active Substance: OMEPRAZOLE
     Dosage: 40 MILLIGRAM, 1 CAPSULE BY MOUTH ONCE A DAY (QTY: 90)
     Route: 048
     Dates: start: 20220718
  10. OXYCODONE [Concomitant]
     Active Substance: OXYCODONE
     Indication: Pain
     Dosage: 5 MILLIGRAM, 1-2 TABLET BY MOUTH EVERY THREE TO FOUR HOURS AS NEEDED FOR PAIN
     Route: 048
     Dates: start: 20220718

REACTIONS (1)
  - Unevaluable event [Unknown]
